FAERS Safety Report 7831889-1 (Version None)
Quarter: 2011Q4

REPORT INFORMATION
  Report Type: 
  Country: None (occurrence: None)
  Receive Date: 20111021
  Receipt Date: 20111018
  Transmission Date: 20120403
  Serious: Yes (Death, Hospitalization)
  Sender: FDA-Public Use
  Company Number: US-AMGEN-US351922

PATIENT
  Age: 84 Year
  Sex: Female
  Weight: 76.3 kg

DRUGS (16)
  1. VITAMIN A/VITAMIN C/VITAMIN E/ZINC/SELENIUM/COPPER/LUTEIN [Concomitant]
  2. CYANOCOBALAMIN [Concomitant]
     Dosage: 250 MUG, QD
  3. RAMELTEON [Concomitant]
  4. OMEPRAZOLE [Concomitant]
     Dosage: 40 MG, QD
  5. LEVOTHYROXINE SODIUM [Concomitant]
     Dosage: .175 MG, QD
  6. ACETAMINOPHEN [Concomitant]
     Dosage: UNK UNK, PRN
  7. VANCOMYCIN HCL [Concomitant]
     Dosage: 250 MG, QOD
  8. GLIPIZIDE [Concomitant]
     Dosage: 20 MG, QD
  9. MEGESTROL ACETATE [Concomitant]
     Dosage: 120 MG, QOD
  10. NPLATE [Suspect]
     Indication: IDIOPATHIC THROMBOCYTOPENIC PURPURA
     Dosage: 80 MUG, QWK
     Route: 058
     Dates: start: 20090526
  11. ATORVASTATIN CALCIUM [Concomitant]
     Dosage: 40 MG, QD
  12. FOLIC ACID [Concomitant]
     Dosage: 800 MUG, QD
  13. LORAZEPAM [Concomitant]
     Dosage: .5 MG, QD
  14. GLIPIZIDE [Concomitant]
     Dosage: 10 MG, QD
  15. MULTI-VITAMINS [Concomitant]
     Dosage: UNK UNK, QD
  16. DULOXETIME HYDROCHLORIDE [Concomitant]
     Dosage: 30 MG, QD

REACTIONS (9)
  - PNEUMONIA [None]
  - CARDIAC FAILURE CONGESTIVE [None]
  - CHRONIC OBSTRUCTIVE PULMONARY DISEASE [None]
  - THROMBOCYTOPENIA [None]
  - ASTHENIA [None]
  - ANAEMIA [None]
  - MYOCARDIAL INFARCTION [None]
  - URINARY TRACT INFECTION [None]
  - DEATH [None]
